FAERS Safety Report 15814040 (Version 1)
Quarter: 2019Q1

REPORT INFORMATION
  Report Type: Spontaneous
  Country: US (occurrence: US)
  Receive Date: 20190111
  Receipt Date: 20190111
  Transmission Date: 20190417
  Serious: No
  Sender: FDA-Public Use
  Company Number: None

PATIENT
  Age: 60 Year
  Sex: Female
  Weight: 54.43 kg

DRUGS (1)
  1. TB PPD SOLUTION [Suspect]
     Active Substance: TUBERCULIN PURIFIED PROTEIN DERIVATIVE

REACTIONS (4)
  - Hypoaesthesia [None]
  - Feeling cold [None]
  - Dizziness [None]
  - Disorientation [None]

NARRATIVE: CASE EVENT DATE: 20190111
